FAERS Safety Report 4840847-0 (Version None)
Quarter: 2005Q4

REPORT INFORMATION
  Report Type: 
  Country: None (occurrence: None)
  Receive Date: 20051130
  Receipt Date: 20050818
  Transmission Date: 20060501
  Serious: Yes (Hospitalization)
  Sender: FDA-Public Use
  Company Number: US-BRISTOL-MYERS SQUIBB COMPANY-13082235

PATIENT
  Age: 74 Year
  Sex: Female
  Weight: 76 kg

DRUGS (2)
  1. AVALIDE [Suspect]
  2. LANOXIN [Concomitant]

REACTIONS (4)
  - CONSTIPATION [None]
  - GLOSSODYNIA [None]
  - NAUSEA [None]
  - VOMITING [None]
